FAERS Safety Report 16857780 (Version 1)
Quarter: 2019Q3

REPORT INFORMATION
  Report Type: Spontaneous
  Country: US (occurrence: US)
  Receive Date: 20190926
  Receipt Date: 20190926
  Transmission Date: 20191005
  Serious: No
  Sender: FDA-Public Use
  Company Number: US-VERTEX PHARMACEUTICALS-2019-009121

PATIENT
  Sex: Male

DRUGS (1)
  1. SYMDEKO [Suspect]
     Active Substance: IVACAFTOR\TEZACAFTOR
     Indication: CYSTIC FIBROSIS
     Dosage: TEZACAFTOR 100 MG/IVACAFTOR 150 MG, BID
     Route: 048
     Dates: start: 2019

REACTIONS (3)
  - Psychiatric symptom [Unknown]
  - Depression [Unknown]
  - Lethargy [Unknown]

NARRATIVE: CASE EVENT DATE: 2019
